FAERS Safety Report 5825761-6 (Version None)
Quarter: 2008Q3

REPORT INFORMATION
  Report Type: 
  Country: None (occurrence: None)
  Receive Date: 20080723
  Receipt Date: 20080715
  Transmission Date: 20090109
  Serious: Yes (Other)
  Sender: FDA-Public Use
  Company Number: 2008SP014329

PATIENT
  Age: 53 Year
  Sex: Female
  Weight: 69 kg

DRUGS (3)
  1. ALBUTEROL [Suspect]
     Indication: DRUG USE FOR UNKNOWN INDICATION
     Dates: start: 20060829
  2. SUNITINIB [Suspect]
     Indication: BREAST CANCER
     Dosage: 25 MG; QD; PO
     Route: 048
     Dates: start: 20080214, end: 20080226
  3. PACLITAXEL [Suspect]
     Indication: BREAST CANCER
     Dosage: 90 MG; QD;
     Dates: start: 20080214, end: 20080226

REACTIONS (1)
  - MYELODYSPLASTIC SYNDROME [None]
